FAERS Safety Report 9203944 (Version 1)
Quarter: 2013Q2

REPORT INFORMATION
  Report Type: Spontaneous
  Country: US (occurrence: US)
  Receive Date: 20130402
  Receipt Date: 20130402
  Transmission Date: 20140414
  Serious: Yes (Other)
  Sender: FDA-Public Use
  Company Number: US-BAYER-2013-038976

PATIENT
  Sex: 0

DRUGS (8)
  1. ALEVE CAPLET [Suspect]
     Indication: TOOTHACHE
     Dosage: BEEN TAKING 3 ALEVE EACH DAY
  2. AMOXICILLIN [Concomitant]
     Dosage: 500 MG, TID
  3. PREDNISONE [Concomitant]
     Dosage: UNK
  4. IMURAN [Concomitant]
  5. MESTINON [Concomitant]
     Dosage: DAILY DOSE 12 DF
  6. MESTINON [Concomitant]
     Dosage: DAILY DOSE 1 DF
  7. SYNTHROID [Concomitant]
     Indication: THYROID DISORDER
  8. CYTOMEL [Concomitant]
     Indication: THYROID DISORDER

REACTIONS (6)
  - Tooth infection [None]
  - Drug ineffective [None]
  - Swelling face [None]
  - Facial pain [None]
  - Pyrexia [None]
  - Sinus congestion [None]
